FAERS Safety Report 7899063-0 (Version None)
Quarter: 2011Q4

REPORT INFORMATION
  Report Type: 
  Country: None (occurrence: None)
  Receive Date: 20111107
  Receipt Date: 20111028
  Transmission Date: 20120403
  Serious: Yes (Disabling)
  Sender: FDA-Public Use
  Company Number: US-MERCK-1103USA03608

PATIENT
  Sex: Male

DRUGS (1)
  1. PROPECIA [Suspect]
     Indication: ALOPECIA
     Route: 048
     Dates: start: 20080606, end: 20101101

REACTIONS (3)
  - ERECTILE DYSFUNCTION [None]
  - MALE SEXUAL DYSFUNCTION [None]
  - ANXIETY [None]
